FAERS Safety Report 23486698 (Version 1)
Quarter: 2024Q1

REPORT INFORMATION
  Report Type: Report from Study
  Country: US (occurrence: US)
  Receive Date: 20240206
  Receipt Date: 20240206
  Transmission Date: 20240409
  Serious: No
  Sender: FDA-Public Use
  Company Number: US-ORG100014127-2023000387

PATIENT
  Age: 60 Year
  Sex: Male

DRUGS (4)
  1. LYSODREN [Suspect]
     Active Substance: MITOTANE
     Indication: Adrenal gland cancer
     Dosage: 500 MG: 2 TABLETS TWICE DAILY
     Route: 048
     Dates: start: 20220531
  2. LYSODREN [Suspect]
     Active Substance: MITOTANE
     Indication: Adrenal gland cancer
     Dosage: 500 MG: 2 TABLETS 4 TIMES DAILY
     Route: 048
  3. LYSODREN [Suspect]
     Active Substance: MITOTANE
     Indication: Adrenal gland cancer
     Dosage: 500 MG: 4 TABLETS 4 TIMES DAILY
     Route: 048
  4. LYSODREN [Suspect]
     Active Substance: MITOTANE
     Indication: Adrenal gland cancer
     Dosage: 500 MG: 3 TABLETS 4 TIMES DAILY
     Route: 048
     Dates: end: 2023

REACTIONS (4)
  - Illness [Not Recovered/Not Resolved]
  - Urinary retention [Not Recovered/Not Resolved]
  - Diarrhoea [Not Recovered/Not Resolved]
  - Nausea [Not Recovered/Not Resolved]

NARRATIVE: CASE EVENT DATE: 20230101
